FAERS Safety Report 15260787 (Version 1)
Quarter: 2018Q3

REPORT INFORMATION
  Report Type: Spontaneous
  Country: US (occurrence: US)
  Receive Date: 20180719
  Receipt Date: 20180719
  Transmission Date: 20181010
  Serious: Yes (Other)
  Sender: FDA-Public Use
  Company Number: None

PATIENT
  Age: 88 Year
  Sex: Female

DRUGS (1)
  1. DILTIAZEM CD CAP 120MG/24HR [Suspect]
     Active Substance: DILTIAZEM
     Indication: BLOOD PRESSURE MEASUREMENT
     Route: 048

REACTIONS (6)
  - Product quality issue [None]
  - Head injury [None]
  - Product substitution issue [None]
  - Fall [None]
  - Incorrect dose administered [None]
  - Blood pressure decreased [None]

NARRATIVE: CASE EVENT DATE: 20180620
